FAERS Safety Report 5739035-5 (Version None)
Quarter: 2008Q2

REPORT INFORMATION
  Report Type: 
  Country: None (occurrence: None)
  Receive Date: 20080515
  Receipt Date: 20080515
  Transmission Date: 20081010
  Serious: Yes (Death)
  Sender: FDA-Public Use
  Company Number: None

PATIENT
  Age: 50 Year
  Sex: Female
  Weight: 63.5036 kg

DRUGS (2)
  1. HEPARIN [Suspect]
     Indication: THROMBOSIS PROPHYLAXIS
     Dosage: 5000UNITS Q 8 HOURS SQ
     Route: 058
     Dates: start: 20071227, end: 20071228
  2. NOVASURE  ENDOMETRIAL ABLATION [Concomitant]

REACTIONS (2)
  - HYPOTENSION [None]
  - TACHYCARDIA [None]
